FAERS Safety Report 6416261-3 (Version None)
Quarter: 2009Q4

REPORT INFORMATION
  Report Type: 
  Country: None (occurrence: None)
  Receive Date: 20091027
  Receipt Date: 20091020
  Transmission Date: 20100525
  Serious: Yes (Life-Threatening, Other)
  Sender: FDA-Public Use
  Company Number: US-ELI_LILLY_AND_COMPANY-US200909006736

PATIENT
  Sex: Female

DRUGS (3)
  1. BYETTA [Suspect]
     Dosage: UNK, UNKNOWN
  2. INSULIN [Concomitant]
     Dosage: UNK, UNKNOWN
  3. GLYBURIDE [Concomitant]
     Dosage: UNK, UNKNOWN

REACTIONS (4)
  - ADVERSE EVENT [None]
  - CYANOSIS [None]
  - GASTROINTESTINAL HAEMORRHAGE [None]
  - OFF LABEL USE [None]
